FAERS Safety Report 24833147 (Version 1)
Quarter: 2025Q1

REPORT INFORMATION
  Report Type: Spontaneous
  Country: PT (occurrence: PT)
  Receive Date: 20250111
  Receipt Date: 20250111
  Transmission Date: 20250408
  Serious: Yes (Life-Threatening, Hospitalization, Other)
  Sender: AUROBINDO
  Company Number: PT-BRISTOL-MYERS SQUIBB COMPANY-BMS-2021-123671

PATIENT
  Age: 79 Year
  Sex: Female

DRUGS (5)
  1. ASPIRIN [Suspect]
     Active Substance: ASPIRIN
     Indication: Antiplatelet therapy
     Route: 065
  2. ASPIRIN [Suspect]
     Active Substance: ASPIRIN
     Indication: Cerebellar infarction
  3. APIXABAN [Suspect]
     Active Substance: APIXABAN
     Indication: Cerebrovascular accident prophylaxis
     Route: 048
  4. APIXABAN [Suspect]
     Active Substance: APIXABAN
     Indication: Atrial fibrillation
  5. ACETAMINOPHEN [Concomitant]
     Active Substance: ACETAMINOPHEN
     Indication: Pain management
     Route: 065

REACTIONS (16)
  - Shock haemorrhagic [Recovered/Resolved]
  - Renal haemorrhage [Recovered/Resolved]
  - Haemoglobin decreased [Recovering/Resolving]
  - Embolic cerebral infarction [Recovered/Resolved]
  - Cerebellar infarction [Recovering/Resolving]
  - Hemiparesis [Recovered/Resolved]
  - Kidney rupture [Recovered/Resolved]
  - Acidosis [Recovering/Resolving]
  - Acid-base balance disorder mixed [Recovering/Resolving]
  - Depressed level of consciousness [Recovering/Resolving]
  - Therapy non-responder [Unknown]
  - Flank pain [Recovering/Resolving]
  - Hypotension [Recovering/Resolving]
  - Lethargy [Recovered/Resolved]
  - Abdominal pain [Unknown]
  - Drug ineffective [Unknown]
